FAERS Safety Report 10392866 (Version 3)
Quarter: 2016Q2

REPORT INFORMATION
  Report Type: Spontaneous
  Country: US (occurrence: US)
  Receive Date: 20140819
  Receipt Date: 20160404
  Transmission Date: 20160815
  Serious: Yes (Hospitalization, Other)
  Sender: FDA-Public Use
  Company Number: US-009507513-1408USA005671

PATIENT
  Sex: Female

DRUGS (3)
  1. FOSAMAX [Suspect]
     Active Substance: ALENDRONATE SODIUM
     Indication: OSTEOPOROSIS
     Dosage: 70 MG, QW
     Route: 048
     Dates: start: 20061129, end: 20080122
  2. FOSAMAX PLUS D [Suspect]
     Active Substance: ALENDRONATE SODIUM\CHOLECALCIFEROL
     Indication: OSTEOPOROSIS
     Dosage: 70-2800 TAB, QW
     Route: 048
     Dates: start: 20080122, end: 20080514
  3. ALENDRONATE SODIUM. [Suspect]
     Active Substance: ALENDRONATE SODIUM
     Indication: OSTEOPOROSIS
     Dosage: 70 MG, QW
     Route: 048
     Dates: start: 20080514, end: 20120209

REACTIONS (10)
  - Ankle fracture [Unknown]
  - Femur fracture [Unknown]
  - Ankle fracture [Unknown]
  - Vitamin D deficiency [Unknown]
  - Blood cholesterol increased [Unknown]
  - Calcium deficiency [Unknown]
  - Back pain [Unknown]
  - Arthralgia [Unknown]
  - Shoulder operation [Unknown]
  - Osteoporosis [Unknown]

NARRATIVE: CASE EVENT DATE: 2006
